FAERS Safety Report 7711678-9 (Version None)
Quarter: 2011Q3

REPORT INFORMATION
  Report Type: 
  Country: None (occurrence: None)
  Receive Date: 20110826
  Receipt Date: 20110721
  Transmission Date: 20111222
  Serious: No
  Sender: FDA-Public Use
  Company Number: US-BRISTOL-MYERS SQUIBB COMPANY-15922131

PATIENT
  Age: 70 Year
  Sex: Male

DRUGS (2)
  1. ONGLYZA [Suspect]
  2. METFORMIN HCL [Suspect]

REACTIONS (2)
  - RASH [None]
  - GASTROINTESTINAL DISORDER [None]
